FAERS Safety Report 4922068-6 (Version None)
Quarter: 2006Q1

REPORT INFORMATION
  Report Type: 
  Country: None (occurrence: None)
  Receive Date: 20060222
  Receipt Date: 20060222
  Transmission Date: 20060701
  Serious: Yes (Hospitalization)
  Sender: FDA-Public Use
  Company Number: None

PATIENT
  Age: 59 Year
  Sex: Male
  Weight: 105.2345 kg

DRUGS (6)
  1. ENOXAPARIN SODIUM [Suspect]
     Indication: ANTICOAGULANT THERAPY
     Dosage: 120 MG SQ  Q12H
     Route: 058
  2. TYLENOL (CAPLET) [Concomitant]
  3. CEFZIL [Concomitant]
  4. TUSSIONEX [Concomitant]
  5. LIPITOR [Concomitant]
  6. PROZAC [Concomitant]

REACTIONS (11)
  - COAGULOPATHY [None]
  - DIZZINESS [None]
  - DUODENITIS [None]
  - GASTRIC ULCER [None]
  - GASTROINTESTINAL HAEMORRHAGE [None]
  - HAEMATEMESIS [None]
  - HAEMOPTYSIS [None]
  - INTERNATIONAL NORMALISED RATIO DECREASED [None]
  - OESOPHAGITIS [None]
  - THROMBOSIS [None]
  - ULCER [None]
